FAERS Safety Report 16056835 (Version 1)
Quarter: 2019Q1

REPORT INFORMATION
  Report Type: Spontaneous
  Country: US (occurrence: US)
  Receive Date: 20190209
  Receipt Date: 20190209
  Transmission Date: 20190418
  Serious: Yes (Other)
  Sender: FDA-Public Use
  Company Number: None

PATIENT
  Sex: Male

DRUGS (24)
  1. EZETIMIBE. [Concomitant]
     Active Substance: EZETIMIBE
  2. HYDROXYUREA. [Concomitant]
     Active Substance: HYDROXYUREA
  3. AIMOVIG [Concomitant]
     Active Substance: ERENUMAB-AOOE
  4. DULOXETINE. [Concomitant]
     Active Substance: DULOXETINE
  5. PROMETHAZINE [Concomitant]
     Active Substance: PROMETHAZINE\PROMETHAZINE HYDROCHLORIDE
  6. PROCHLOPER [Concomitant]
  7. ESBRIET [Suspect]
     Active Substance: PIRFENIDONE
     Indication: PULMONARY ARTERIAL HYPERTENSION
     Route: 048
     Dates: start: 20180707
  8. NIACIN ER [Concomitant]
     Active Substance: NIACIN
  9. CLOTRIMAZOLE LOZ [Concomitant]
  10. LOSARTAN POT [Concomitant]
     Active Substance: LOSARTAN POTASSIUM
  11. NORTRIPTYLIN [Concomitant]
     Active Substance: NORTRIPTYLINE
  12. CEPHALEXIN. [Concomitant]
     Active Substance: CEPHALEXIN
  13. LINZESS [Concomitant]
     Active Substance: LINACLOTIDE
  14. FLUCONAZOLE. [Concomitant]
     Active Substance: FLUCONAZOLE
  15. FENOFIBRATE. [Suspect]
     Active Substance: FENOFIBRATE
  16. LOSARTAN POT [Concomitant]
     Active Substance: LOSARTAN POTASSIUM
  17. MORPHINE SULF [Concomitant]
     Active Substance: MORPHINE SULFATE
  18. DEXAMETHASON [Concomitant]
     Active Substance: DEXAMETHASONE
  19. ONDANSETRON [Concomitant]
     Active Substance: ONDANSETRON
  20. ASPIRIN. [Concomitant]
     Active Substance: ASPIRIN
  21. PRAVASTATIN. [Concomitant]
     Active Substance: PRAVASTATIN
  22. VENTOLIN HFA [Concomitant]
     Active Substance: ALBUTEROL SULFATE
  23. HYDROCO/APAP [Concomitant]
     Active Substance: ACETAMINOPHEN\HYDROCODONE
  24. NARCAN [Concomitant]
     Active Substance: NALOXONE HYDROCHLORIDE

REACTIONS (1)
  - Lung carcinoma cell type unspecified stage IV [None]
